FAERS Safety Report 4396477-0 (Version None)
Quarter: 2004Q2

REPORT INFORMATION
  Report Type: 
  Country: None (occurrence: None)
  Receive Date: 20040621
  Receipt Date: 20030521
  Transmission Date: 20050107
  Serious: Yes (Death, Other)
  Sender: FDA-Public Use
  Company Number: USA-2003-0006663

PATIENT
  Age: 15 Year
  Sex: Male
  Weight: 49.9 kg

DRUGS (3)
  1. OXYCONTIN [Suspect]
     Dosage: 20 MG
  2. XANAX [Concomitant]
  3. LORTAB [Concomitant]

REACTIONS (3)
  - DRUG ABUSER [None]
  - ILL-DEFINED DISORDER [None]
  - OVERDOSE [None]
